FAERS Safety Report 15180365 (Version 1)
Quarter: 2018Q3

REPORT INFORMATION
  Report Type: Spontaneous
  Country: US (occurrence: US)
  Receive Date: 20180623
  Receipt Date: 20180623
  Transmission Date: 20181010
  Serious: Yes (Hospitalization)
  Sender: FDA-Public Use
  Company Number: None

PATIENT
  Age: 49 Year
  Sex: Female

DRUGS (1)
  1. GLATOPA [Suspect]
     Active Substance: GLATIRAMER ACETATE
     Dates: start: 20170601, end: 20180623

REACTIONS (2)
  - Insurance issue [None]
  - Therapy cessation [None]

NARRATIVE: CASE EVENT DATE: 20180613
